FAERS Safety Report 16940248 (Version 2)
Quarter: 2020Q1

REPORT INFORMATION
  Report Type: Report from Study
  Country: IT (occurrence: IT)
  Receive Date: 20191021
  Receipt Date: 20200107
  Transmission Date: 20200409
  Serious: Yes (Hospitalization)
  Sender: FDA-Public Use
  Company Number: IT-ACCORD-158254

PATIENT
  Age: 73 Year
  Sex: Female
  Weight: 65 kg

DRUGS (6)
  1. DEXAMETHASONE PHOSPHATE HOSPIRA [Concomitant]
     Active Substance: DEXAMETHASONE PHOSPHATE
     Dosage: STRENGTH: 4 MG / ML
  2. VESSEL [Concomitant]
     Active Substance: HUMAN BLOOD VESSEL
     Dosage: 250 LSU SOFT CAPSULES
  3. MONURIL [Concomitant]
     Active Substance: FOSFOMYCIN TROMETHAMINE
     Dosage: 3 G GRANULES FOR ORAL SOLUTION
  4. TOPOTECAN [Suspect]
     Active Substance: TOPOTECAN HYDROCHLORIDE
     Indication: UTERINE CANCER
     Route: 042
     Dates: start: 20190918, end: 20190918
  5. FOLINA [Concomitant]
     Dosage: STRENGTH: 5 MG SOFT CAPSULES
  6. CARDIOASPIRIN [Concomitant]
     Active Substance: ASPIRIN
     Dosage: STRENGTH: 100 MG

REACTIONS (3)
  - Off label use [Unknown]
  - Leukocoria [Recovering/Resolving]
  - Neutropenia [Recovering/Resolving]

NARRATIVE: CASE EVENT DATE: 20190926
